FAERS Safety Report 17904561 (Version 1)
Quarter: 2020Q2

REPORT INFORMATION
  Report Type: Spontaneous
  Country: US (occurrence: US)
  Receive Date: 20200616
  Receipt Date: 20200616
  Transmission Date: 20200714
  Serious: No
  Sender: FDA-Public Use
  Company Number: US-ROCHE-2436395

PATIENT
  Age: 73 Year
  Sex: Female
  Weight: 54.48 kg

DRUGS (5)
  1. ACTEMRA [Suspect]
     Active Substance: TOCILIZUMAB
     Indication: RHEUMATOID ARTHRITIS
     Route: 042
     Dates: start: 2019, end: 201908
  2. SIMPONI [Concomitant]
     Active Substance: GOLIMUMAB
  3. REMICADE [Concomitant]
     Active Substance: INFLIXIMAB
  4. RITUXAN [Suspect]
     Active Substance: RITUXIMAB
     Indication: RHEUMATOID ARTHRITIS
     Dosage: GIVEN 2 WEEKS APART
     Route: 042
     Dates: start: 20190916
  5. METHOTREXATE. [Concomitant]
     Active Substance: METHOTREXATE

REACTIONS (15)
  - Haemorrhage [Recovered/Resolved]
  - Decreased appetite [Not Recovered/Not Resolved]
  - Throat tightness [Unknown]
  - Glassy eyes [Recovering/Resolving]
  - Rash [Not Recovered/Not Resolved]
  - Decreased appetite [Not Recovered/Not Resolved]
  - Rash [Not Recovered/Not Resolved]
  - Sinusitis [Not Recovered/Not Resolved]
  - Pain [Recovered/Resolved]
  - Vision blurred [Recovering/Resolving]
  - Diarrhoea [Not Recovered/Not Resolved]
  - Pruritus [Not Recovered/Not Resolved]
  - Migraine [Not Recovered/Not Resolved]
  - Swelling [Recovered/Resolved]
  - Fatigue [Recovered/Resolved]

NARRATIVE: CASE EVENT DATE: 2019
